FAERS Safety Report 19179330 (Version 1)
Quarter: 2021Q2

REPORT INFORMATION
  Report Type: Spontaneous
  Country: US (occurrence: US)
  Receive Date: 20210426
  Receipt Date: 20210426
  Transmission Date: 20210717
  Serious: No
  Sender: FDA-Public Use
  Company Number: US-BAYER-2021-130264

PATIENT
  Age: 83 Year
  Sex: Male

DRUGS (4)
  1. MUCINEX [Concomitant]
     Active Substance: GUAIFENESIN
  2. MIRALAX [Suspect]
     Active Substance: POLYETHYLENE GLYCOL 3350
     Indication: CONSTIPATION
     Dosage: 1 DF, QD
     Route: 048
     Dates: start: 2019
  3. VITAMINS NOS [Concomitant]
     Active Substance: VITAMINS
  4. BAYER LOW DOSE [Suspect]
     Active Substance: ASPIRIN
     Indication: ISCHAEMIC HEART DISEASE PROPHYLAXIS
     Dosage: 1 DF, QD
     Route: 048

REACTIONS (3)
  - Product use in unapproved indication [Unknown]
  - Dyschezia [Unknown]
  - Product use in unapproved indication [None]
